FAERS Safety Report 9848381 (Version 1)
Quarter: 2013Q4

REPORT INFORMATION
  Report Type: Spontaneous
  Country: US (occurrence: None)
  Receive Date: 20131224
  Receipt Date: 20131224
  Transmission Date: 20140711
  Serious: Yes (Other)
  Sender: FDA-Public Use
  Company Number: PHEH2012US024577

PATIENT
  Age: 64 Year
  Sex: Female

DRUGS (1)
  1. EXJADE (*CGP 72670*) UNKNOWN [Suspect]
     Indication: IRON OVERLOAD
     Route: 048
     Dates: start: 20120622, end: 20121118

REACTIONS (1)
  - Hepatic function abnormal [None]
